FAERS Safety Report 24326259 (Version 1)
Quarter: 2024Q3

REPORT INFORMATION
  Report Type: Spontaneous
  Country: US (occurrence: None)
  Receive Date: 20240917
  Receipt Date: 20240917
  Transmission Date: 20241017
  Serious: No
  Sender: ASTRAZENECA
  Company Number: 2024A201193

PATIENT
  Sex: Male

DRUGS (1)
  1. BYDUREON BCISE [Suspect]
     Active Substance: EXENATIDE

REACTIONS (7)
  - Decreased activity [Unknown]
  - Dyspnoea [Unknown]
  - Anxiety [Unknown]
  - Weight decreased [Unknown]
  - Fear [Unknown]
  - Mental impairment [Unknown]
  - Drug ineffective [Unknown]
